FAERS Safety Report 6737959-3 (Version None)
Quarter: 2010Q2

REPORT INFORMATION
  Report Type: 
  Country: None (occurrence: None)
  Receive Date: 20100524
  Receipt Date: 20100312
  Transmission Date: 20101027
  Serious: No
  Sender: FDA-Public Use
  Company Number: A0851411A

PATIENT
  Sex: Female

DRUGS (1)
  1. ARZERRA [Suspect]
     Route: 042
     Dates: start: 20100111, end: 20100226

REACTIONS (1)
  - DISEASE PROGRESSION [None]
